FAERS Safety Report 15744787 (Version 1)
Quarter: 2018Q4

REPORT INFORMATION
  Report Type: Spontaneous
  Country: US (occurrence: US)
  Receive Date: 20181205
  Receipt Date: 20181205
  Transmission Date: 20190205
  Serious: Yes (Hospitalization)
  Sender: FDA-Public Use
  Company Number: None

PATIENT
  Age: 55 Year

DRUGS (11)
  1. NEULASTA [Suspect]
     Active Substance: PEGFILGRASTIM
  2. BACTRIM [Concomitant]
     Active Substance: SULFAMETHOXAZOLE\TRIMETHOPRIM
  3. IDELALISIB PO BID (GILEAD) [Suspect]
     Active Substance: IDELALISIB
     Indication: PRODUCT USED FOR UNKNOWN INDICATION
     Route: 048
     Dates: start: 20181105, end: 20181128
  4. Z-PACK [Concomitant]
     Active Substance: AZITHROMYCIN DIHYDRATE
  5. IVIG [Concomitant]
     Active Substance: HUMAN IMMUNOGLOBULIN G
  6. LEVOTHYROXINE. [Concomitant]
     Active Substance: LEVOTHYROXINE
  7. VALTREX [Concomitant]
     Active Substance: VALACYCLOVIR HYDROCHLORIDE
  8. GLIPIZIDE. [Concomitant]
     Active Substance: GLIPIZIDE
  9. IDELALISIB [Concomitant]
     Active Substance: IDELALISIB
  10. PROSAC [Concomitant]
  11. PROTONIX [Concomitant]
     Active Substance: PANTOPRAZOLE SODIUM

REACTIONS (11)
  - Colitis [None]
  - Haemoglobin decreased [None]
  - Haematocrit decreased [None]
  - Alanine aminotransferase increased [None]
  - Aspartate aminotransferase increased [None]
  - Graft versus host disease in gastrointestinal tract [None]
  - Toxicity to various agents [None]
  - Blood magnesium decreased [None]
  - Platelet count decreased [None]
  - Blood alkaline phosphatase increased [None]
  - Retching [None]

NARRATIVE: CASE EVENT DATE: 20181130
